FAERS Safety Report 4301939-8 (Version None)
Quarter: 2004Q1

REPORT INFORMATION
  Report Type: 
  Country: None (occurrence: None)
  Receive Date: 20040223
  Receipt Date: 20040126
  Transmission Date: 20041129
  Serious: Yes (Hospitalization)
  Sender: FDA-Public Use
  Company Number: US-BRISTOL-MYERS SQUIBB COMPANY-12488326

PATIENT
  Age: 53 Year
  Sex: Male

DRUGS (9)
  1. CETUXIMAB [Suspect]
     Indication: COLORECTAL CANCER
     Dosage: 1ST DOSE 14-OCT-2003(DOSE 928MG),FOLLOWED BY 569 MG/WEEK FROM 23 OCT 2003-PT RECEIVED 11 DOSES
     Route: 042
     Dates: start: 20031023
  2. ZOLOFT [Concomitant]
  3. PROCARDIA [Concomitant]
     Dates: start: 20020301
  4. AMARYL [Concomitant]
     Dates: end: 20031101
  5. LAXATIVES [Concomitant]
  6. PREVACID [Concomitant]
     Dates: start: 20031201
  7. LACTULOSE [Concomitant]
     Dates: start: 20031201
  8. LASIX [Concomitant]
     Dates: start: 20031106
  9. AUGMENTIN [Concomitant]
     Dates: start: 20031023, end: 20031028

REACTIONS (2)
  - DUODENAL ULCER [None]
  - GASTROINTESTINAL HAEMORRHAGE [None]
